FAERS Safety Report 16370196 (Version 4)
Quarter: 2021Q1

REPORT INFORMATION
  Report Type: Report from Study
  Country: JP (occurrence: JP)
  Receive Date: 20190530
  Receipt Date: 20210324
  Transmission Date: 20210419
  Serious: Yes (Hospitalization, Other)
  Sender: FDA-Public Use
  Company Number: JP-VIIV HEALTHCARE LIMITED-JP2017JPN199674

PATIENT
  Age: 34 Year
  Sex: Male

DRUGS (3)
  1. ABACAVIRSULPHATE+DOLUTEGRAVIR+LAMIVUDINE [Suspect]
     Active Substance: ABACAVIR SULFATE\DOLUTEGRAVIR SODIUM\LAMIVUDINE
     Indication: HIV INFECTION
     Dosage: 1 DF, 1D
     Route: 048
     Dates: start: 20160201
  2. SAMTIREL [Concomitant]
     Active Substance: ATOVAQUONE
     Indication: ANTIFUNGAL PROPHYLAXIS
     Dosage: 10 ML, QD
     Dates: start: 20160113, end: 20160218
  3. BENAMBAX [Concomitant]
     Active Substance: PENTAMIDINE
     Indication: PROPHYLAXIS
     Dosage: 300 MG, UNK
     Dates: start: 20160219, end: 20160328

REACTIONS (4)
  - Vertigo [Recovered/Resolved]
  - Dyslipidaemia [Recovering/Resolving]
  - Hypoxia [Recovering/Resolving]
  - Hypertension [Not Recovered/Not Resolved]

NARRATIVE: CASE EVENT DATE: 20170206
